FAERS Safety Report 15106747 (Version 1)
Quarter: 2018Q3

REPORT INFORMATION
  Report Type: Spontaneous
  Country: US (occurrence: US)
  Receive Date: 20180704
  Receipt Date: 20180704
  Transmission Date: 20181010
  Serious: No
  Sender: FDA-Public Use
  Company Number: US-SA-2018SA172837

PATIENT
  Age: 53 Year
  Sex: Female

DRUGS (1)
  1. DUPIXENT [Suspect]
     Active Substance: DUPILUMAB
     Indication: DERMATITIS ATOPIC
     Dosage: 300 MG/2ML PFS2^S, QOW
     Route: 058
     Dates: start: 201805

REACTIONS (3)
  - Dermatitis [Unknown]
  - Injection site pain [Unknown]
  - Pruritus [Unknown]

NARRATIVE: CASE EVENT DATE: 20180605
